FAERS Safety Report 7905688 (Version 2)
Quarter: 2012Q4

REPORT INFORMATION
  Report Type: 
  Country: US (occurrence: US)
  Receive Date: 20110420
  Receipt Date: 20121206
  Transmission Date: 20130627
  Serious: Yes (Death, Disabling, Other)
  Sender: FDA-Public Use
  Company Number: US-TEVA-276369USA

PATIENT
  Sex: Female

DRUGS (4)
  1. METOCLOPRAMIDE [Suspect]
     Indication: ABDOMINAL DISTENSION
  2. METOCLOPRAMIDE [Suspect]
     Indication: DYSPEPSIA
  3. REGLAN [Suspect]
     Indication: ABDOMINAL DISTENSION
  4. REGLAN [Suspect]
     Indication: DYSPEPSIA

REACTIONS (6)
  - Tardive dyskinesia [Fatal]
  - Movement disorder [Fatal]
  - Nervous system disorder [Fatal]
  - Extrapyramidal disorder [Fatal]
  - Parkinsonism [Fatal]
  - Essential tremor [Fatal]
